FAERS Safety Report 9516501 (Version 1)
Quarter: 2013Q1

REPORT INFORMATION
  Report Type: Spontaneous
  Country: US (occurrence: None)
  Receive Date: 20130305
  Receipt Date: 20130305
  Transmission Date: 20140127
  Serious: Yes (Other)
  Sender: FDA-Public Use
  Company Number: 163-21880-12081352

PATIENT
  Age: 50 Year
  Sex: Male
  Weight: 105.2 kg

DRUGS (3)
  1. REVLIMID (LENALIDOMIDE) (CAPSULES) [Suspect]
     Indication: PLASMA CELL MYELOMA
     Dosage: 10 MG, 1 IN 1 D, PO
     Route: 048
     Dates: start: 20120717, end: 20120810
  2. WARFARIN (WARFARIN) [Concomitant]
  3. BISACODYL (BISACODYL) [Concomitant]

REACTIONS (1)
  - Tachycardia [None]
